FAERS Safety Report 6221916-X (Version None)
Quarter: 2009Q2

REPORT INFORMATION
  Report Type: 
  Country: None (occurrence: None)
  Receive Date: 20090608
  Receipt Date: 20090608
  Transmission Date: 20091009
  Serious: Yes (Other)
  Sender: FDA-Public Use
  Company Number: None

PATIENT
  Age: 44 Year
  Sex: Male
  Weight: 87.5442 kg

DRUGS (1)
  1. CLONAZEPAM [Suspect]
     Indication: ANXIETY DISORDER
     Dosage: 1 1 MG HS PO
     Route: 048
     Dates: start: 20090603, end: 20090605

REACTIONS (4)
  - ANXIETY [None]
  - PALPITATIONS [None]
  - PRODUCT SUBSTITUTION ISSUE [None]
  - WITHDRAWAL SYNDROME [None]
